FAERS Safety Report 16005996 (Version 1)
Quarter: 2019Q1

REPORT INFORMATION
  Report Type: Spontaneous
  Country: US (occurrence: US)
  Receive Date: 20190226
  Receipt Date: 20190226
  Transmission Date: 20190418
  Serious: Yes (Other)
  Sender: FDA-Public Use
  Company Number: None

PATIENT
  Age: 45 Year
  Sex: Female
  Weight: 60.3 kg

DRUGS (1)
  1. BASAGLAR [Suspect]
     Active Substance: INSULIN GLARGINE
     Indication: DIABETES MELLITUS
     Route: 058
     Dates: start: 20180301, end: 20190226

REACTIONS (5)
  - Pruritus [None]
  - Stress [None]
  - Insomnia [None]
  - Blood glucose increased [None]
  - Skin haemorrhage [None]

NARRATIVE: CASE EVENT DATE: 20180301
